FAERS Safety Report 9458227 (Version 5)
Quarter: 2013Q3

REPORT INFORMATION
  Report Type: Spontaneous
  Country: GB (occurrence: None)
  Receive Date: 20130812
  Receipt Date: 20130830
  Transmission Date: 20140515
  Serious: Yes (Death, Congenital Anomaly)
  Sender: FDA-Public Use
  Company Number: AUR-APL-2013-06519

PATIENT
  Sex: 0

DRUGS (1)
  1. CITALOPRAM [Suspect]
     Indication: PRODUCT USED FOR UNKNOWN INDICATION
     Route: 064
     Dates: start: 2010, end: 2010

REACTIONS (4)
  - Foetal death [None]
  - Maternal drugs affecting foetus [None]
  - Pulmonary artery stenosis congenital [None]
  - Abortion spontaneous [None]
